FAERS Safety Report 4639927-4 (Version None)
Quarter: 2005Q2

REPORT INFORMATION
  Report Type: 
  Country: None (occurrence: None)
  Receive Date: 20050415
  Receipt Date: 20050411
  Transmission Date: 20051028
  Serious: Yes (Life-Threatening, Hospitalization, Other)
  Sender: FDA-Public Use
  Company Number: 2005033954

PATIENT
  Age: 43 Year
  Sex: Female

DRUGS (8)
  1. LIPITOR [Suspect]
     Indication: ILL-DEFINED DISORDER
     Dosage: 10 MG (10 MG, 1 IN 1 D), ORAL
     Route: 048
     Dates: start: 20021015, end: 20050209
  2. FAMOTIDINE [Concomitant]
  3. DIPYRIDAMOLE [Concomitant]
  4. TEPRENONE (TEPRENONE) [Concomitant]
  5. CALCITRIOL [Concomitant]
  6. FUROSEMIDE [Concomitant]
  7. BROTIZOLAM (BROTIZOLAM) [Concomitant]
  8. CALCIUM LACTATE (CALCIUM LACTATE) [Concomitant]

REACTIONS (1)
  - THROMBOTIC THROMBOCYTOPENIC PURPURA [None]
